FAERS Safety Report 9821470 (Version 2)
Quarter: 2014Q1

REPORT INFORMATION
  Report Type: Spontaneous
  Country: US (occurrence: US)
  Receive Date: 20140116
  Receipt Date: 20140116
  Transmission Date: 20141002
  Serious: No
  Sender: FDA-Public Use
  Company Number: US-GILEAD-2011-0035879

PATIENT
  Age: 76 Year
  Sex: Female
  Weight: 66.68 kg

DRUGS (9)
  1. LETAIRIS [Suspect]
     Indication: PULMONARY HYPERTENSION
     Route: 048
     Dates: start: 201012
  2. LETAIRIS [Suspect]
     Indication: MIXED CONNECTIVE TISSUE DISEASE
  3. ADCIRCA [Concomitant]
  4. METOPROLOL [Concomitant]
  5. ASA [Concomitant]
  6. HYDRALAZINE [Concomitant]
  7. BUMEX [Concomitant]
  8. LEVOTHYROXINE [Concomitant]
  9. FISH OIL [Concomitant]

REACTIONS (2)
  - Fatigue [Recovered/Resolved]
  - Oedema [Recovered/Resolved]
